FAERS Safety Report 24183887 (Version 1)
Quarter: 2024Q3

REPORT INFORMATION
  Report Type: Spontaneous
  Country: US (occurrence: None)
  Receive Date: 20240806
  Receipt Date: 20240806
  Transmission Date: 20241017
  Serious: No
  Sender: Public
  Company Number: None

PATIENT
  Sex: 0

DRUGS (1)
  1. LIALDA [Suspect]
     Active Substance: MESALAMINE

REACTIONS (3)
  - Cataract [None]
  - Ocular discomfort [None]
  - Heart valve incompetence [None]
